FAERS Safety Report 4568592-X (Version None)
Quarter: 2005Q1

REPORT INFORMATION
  Report Type: 
  Country: None (occurrence: None)
  Receive Date: 20050202
  Receipt Date: 20030721
  Transmission Date: 20050727
  Serious: Yes (Death, Other)
  Sender: FDA-Public Use
  Company Number: US-ABBOTT-03P-163-0225896-00

PATIENT
  Age: 33 Year
  Sex: Male
  Weight: 88.076 kg

DRUGS (2)
  1. HYDROCODONE [Suspect]
     Indication: DRUG USE FOR UNKNOWN INDICATION
     Dates: end: 20020101
  2. DIAZEPAM [Suspect]
     Indication: DRUG USE FOR UNKNOWN INDICATION
     Dates: end: 20020101

REACTIONS (2)
  - DRUG LEVEL INCREASED [None]
  - DRUG TOXICITY [None]
